FAERS Safety Report 26007551 (Version 1)
Quarter: 2025Q4

REPORT INFORMATION
  Report Type: Spontaneous
  Country: US (occurrence: None)
  Receive Date: 20251106
  Receipt Date: 20251106
  Transmission Date: 20260118
  Serious: Yes (Other)
  Sender: FDA-CTU
  Company Number: None

PATIENT
  Age: 42 Year
  Sex: Male
  Weight: 81.99 kg

DRUGS (3)
  1. ARIPIPRAZOLE [Suspect]
     Active Substance: ARIPIPRAZOLE
     Indication: Psychotic disorder
     Dosage: FREQUENCY : DAILY;?
     Route: 048
     Dates: start: 20240926
  2. Aripiprazole 10 mg daily [Concomitant]
     Dates: start: 20240926, end: 20250828
  3. Benztropine 0.5 mg daily [Concomitant]

REACTIONS (6)
  - Tongue movement disturbance [None]
  - Muscle contractions involuntary [None]
  - Restlessness [None]
  - Dyskinesia [None]
  - Restless legs syndrome [None]
  - Tremor [None]

NARRATIVE: CASE EVENT DATE: 20250813
